FAERS Safety Report 4563627-2 (Version None)
Quarter: 2005Q1

REPORT INFORMATION
  Report Type: 
  Country: None (occurrence: None)
  Receive Date: 20050128
  Receipt Date: 20040726
  Transmission Date: 20050727
  Serious: Yes (Death, Hospitalization)
  Sender: FDA-Public Use
  Company Number: PHNU2004DE02637

PATIENT
  Age: 81 Year
  Sex: Male

DRUGS (1)
  1. CLOZARIL [Suspect]
     Indication: SCHIZOPHRENIA
     Dosage: UNKNOWN
     Route: 048
     Dates: start: 20010101

REACTIONS (9)
  - ABDOMINAL OPERATION [None]
  - ANGIOPATHY [None]
  - ARTIFICIAL ANUS [None]
  - CONSTIPATION [None]
  - DRY MOUTH [None]
  - DYSPHAGIA [None]
  - ERYTHEMA [None]
  - GASTROINTESTINAL INFECTION [None]
  - ILEUS [None]
